FAERS Safety Report 8790534 (Version 1)
Quarter: 2012Q4

REPORT INFORMATION
  Report Type: 
  Country: DE (occurrence: None)
  Receive Date: 20120906
  Receipt Date: 20120906
  Transmission Date: 20130627
  Serious: Yes (Hospitalization)
  Sender: FDA-Public Use
  Company Number: AUR-APL-2012-03708

PATIENT
  Age: 9 Year
  Sex: Male
  Weight: 40 kg

DRUGS (4)
  1. RISPERIDONE [Suspect]
     Dates: start: 20101021, end: 20120211
  2. RISPERIDONE [Suspect]
     Route: 048
  3. METHYLPHENIDATE HCL [Suspect]
     Route: 048
     Dates: end: 20120213
  4. ATOMOXETINE [Suspect]
     Route: 048
     Dates: start: 20101103, end: 20120206

REACTIONS (6)
  - Tachycardia [None]
  - Blood pressure increased [None]
  - Tic [None]
  - Weight decreased [None]
  - Decreased appetite [None]
  - Sensation of foreign body [None]
